FAERS Safety Report 14353347 (Version 1)
Quarter: 2018Q1

REPORT INFORMATION
  Report Type: Spontaneous
  Country: CZ (occurrence: CZ)
  Receive Date: 20180105
  Receipt Date: 20180105
  Transmission Date: 20180509
  Serious: Yes (Hospitalization)
  Sender: FDA-Public Use
  Company Number: CZ-BAXTER-2017BAX045777

PATIENT
  Age: 66 Year
  Sex: Female

DRUGS (10)
  1. GRANISETRON [Concomitant]
     Active Substance: GRANISETRON
     Indication: PRODUCT USED FOR UNKNOWN INDICATION
     Route: 065
  2. STADAMET [Concomitant]
     Active Substance: METFORMIN HYDROCHLORIDE
     Indication: PRODUCT USED FOR UNKNOWN INDICATION
     Dosage: 1-0-0
     Route: 065
  3. DEXONA [Concomitant]
     Active Substance: DEXAMETHASONE
     Indication: PRODUCT USED FOR UNKNOWN INDICATION
     Route: 065
  4. 0,9% SODIUM CHLORIDE INTRAVENOUS INFUSION BP BAXTER [Suspect]
     Active Substance: SODIUM CHLORIDE
     Indication: MEDICATION DILUTION
     Dosage: HOLOXAN 5000 MG + UROMITEXAN 5000 MG + 1000 ML SALINE SOLUTION, DAY 1-3, 24 HOURS CONTINUOUSLY
     Route: 065
     Dates: start: 20171115, end: 20171117
  5. FOXIS [Concomitant]
     Indication: PAIN
     Dosage: DURING THE PAIN
     Route: 065
  6. UROMITEXAN 400 MG [Suspect]
     Active Substance: MESNA
     Indication: PRODUCT USED FOR UNKNOWN INDICATION
     Dosage: HOLOXAN 5000 MG + UROMITEXAN 5000 MG + 1000 ML SALINE SOLUTION, DAY 1-3, 24 HOURS CONTINUOUSLY
     Route: 065
     Dates: start: 20171115, end: 20171117
  7. RANITIDINE. [Concomitant]
     Active Substance: RANITIDINE
     Indication: PRODUCT USED FOR UNKNOWN INDICATION
     Route: 065
  8. LANZUL [Concomitant]
     Active Substance: LANSOPRAZOLE
     Indication: PRODUCT USED FOR UNKNOWN INDICATION
     Dosage: 1-0-0
     Route: 065
  9. HOLOXAN 2 G [Suspect]
     Active Substance: IFOSFAMIDE
     Indication: PRODUCT USED FOR UNKNOWN INDICATION
     Dosage: HOLOXAN 5000 MG + UROMITEXAN 5000 MG + SALINE SOLUTION 1000 ML, DAY 1-3, CONTINUOUSLY 24 HOURS
     Route: 065
     Dates: start: 20171115, end: 20171117
  10. TRITACE [Concomitant]
     Active Substance: RAMIPRIL
     Indication: PRODUCT USED FOR UNKNOWN INDICATION
     Dosage: 1-0-0
     Route: 065

REACTIONS (5)
  - Epistaxis [Unknown]
  - Thrombocytopenia [Unknown]
  - Acute kidney injury [Unknown]
  - Anaemia [Unknown]
  - Neutropenia [Unknown]

NARRATIVE: CASE EVENT DATE: 20171127
